FAERS Safety Report 7641620-0 (Version None)
Quarter: 2011Q3

REPORT INFORMATION
  Report Type: 
  Country: None (occurrence: None)
  Receive Date: 20110728
  Receipt Date: 20110708
  Transmission Date: 20111222
  Serious: Yes (Hospitalization)
  Sender: FDA-Public Use
  Company Number: US-GLAXOSMITHKLINE-A0748266A

PATIENT
  Age: 65 Year
  Sex: Female
  Weight: 84.1 kg

DRUGS (7)
  1. LIPITOR [Concomitant]
  2. AVANDIA [Suspect]
     Indication: DIABETES MELLITUS
     Dosage: 4MG TWICE PER DAY
     Route: 048
     Dates: start: 20051208, end: 20070504
  3. AVANDAMET [Suspect]
     Indication: DIABETES MELLITUS
     Route: 048
     Dates: start: 20060101
  4. LISINOPRIL [Concomitant]
  5. ZOLOFT [Concomitant]
  6. METOPROLOL TARTRATE [Concomitant]
  7. CELEXA [Concomitant]

REACTIONS (1)
  - CEREBROVASCULAR ACCIDENT [None]
